FAERS Safety Report 23135849 (Version 2)
Quarter: 2023Q4

REPORT INFORMATION
  Report Type: Report from Study
  Country: US (occurrence: US)
  Receive Date: 20231101
  Receipt Date: 20231109
  Transmission Date: 20240110
  Serious: Yes (Other)
  Sender: FDA-Public Use
  Company Number: US-ABBVIE-5474551

PATIENT
  Sex: Male

DRUGS (1)
  1. BOTOX [Suspect]
     Active Substance: ONABOTULINUMTOXINA
     Indication: Product used for unknown indication
     Dosage: TIME INTERVAL: AS NECESSARY
     Route: 065
     Dates: start: 20211025, end: 20211025

REACTIONS (7)
  - Chest pain [Recovering/Resolving]
  - Atrial fibrillation [Unknown]
  - Vascular occlusion [Unknown]
  - Swelling face [Recovered/Resolved]
  - Depression [Recovering/Resolving]
  - Eye swelling [Recovered/Resolved]
  - Impaired work ability [Not Recovered/Not Resolved]

NARRATIVE: CASE EVENT DATE: 20211025
